FAERS Safety Report 22585548 (Version 4)
Quarter: 2023Q4

REPORT INFORMATION
  Report Type: Spontaneous
  Country: US (occurrence: US)
  Receive Date: 20230610
  Receipt Date: 20231006
  Transmission Date: 20240109
  Serious: No
  Sender: FDA-Public Use
  Company Number: US-AMGEN-USASP2023098380

PATIENT
  Age: 37 Year
  Sex: Female

DRUGS (4)
  1. TAVNEOS [Suspect]
     Active Substance: AVACOPAN
     Indication: Granulomatosis with polyangiitis
     Dosage: 30 MILLIGRAM, BID (TAKE 3 CAPSULES (30 MG) BY MOUTH TWICE DAILY WITH FOOD)
     Route: 048
  2. TAVNEOS [Suspect]
     Active Substance: AVACOPAN
     Dosage: 20 MILLIGRAM, BID (TAKE TWO CAPSULES BY MOUTH TWICE DAILY WITH FOOD)
     Route: 048
  3. TAVNEOS [Suspect]
     Active Substance: AVACOPAN
     Dosage: 10 MILLIGRAM, BID (DOSE WAS REDUCED TO 1 CAPSULE TWICE A DAY)
     Route: 048
  4. TAVNEOS [Suspect]
     Active Substance: AVACOPAN
     Dosage: 20 MILLIGRAM, BID (THEN 2 CAPSULES TWICE A DAY)
     Route: 048

REACTIONS (6)
  - Anxiety [Unknown]
  - Drug intolerance [Unknown]
  - Panic attack [Unknown]
  - Nasal disorder [Unknown]
  - Hypoacusis [Unknown]
  - Oropharyngeal discomfort [Unknown]
